FAERS Safety Report 16870030 (Version 1)
Quarter: 2019Q3

REPORT INFORMATION
  Report Type: Spontaneous
  Country: FR (occurrence: FR)
  Receive Date: 20190930
  Receipt Date: 20190930
  Transmission Date: 20191005
  Serious: Yes (Hospitalization)
  Sender: FDA-Public Use
  Company Number: FR-MYLANLABS-2019M1090983

PATIENT
  Age: 91 Year
  Sex: Female
  Weight: 53 kg

DRUGS (1)
  1. VANCOMYCIN [Suspect]
     Active Substance: VANCOMYCIN
     Indication: INFECTION
     Dosage: 1.5 GRAM, QD
     Route: 042
     Dates: start: 20190410, end: 20190415

REACTIONS (2)
  - Thrombosis [Recovering/Resolving]
  - Vessel puncture site inflammation [Recovering/Resolving]

NARRATIVE: CASE EVENT DATE: 201904
